FAERS Safety Report 5100565-0 (Version None)
Quarter: 2006Q3

REPORT INFORMATION
  Report Type: 
  Country: None (occurrence: None)
  Receive Date: 20060909
  Receipt Date: 20060830
  Transmission Date: 20061208
  Serious: Yes (Other)
  Sender: FDA-Public Use
  Company Number: JP-ABBOTT-06P-087-0342725-00

PATIENT
  Age: 29 Year
  Sex: Male

DRUGS (6)
  1. CLARITHROMYCIN [Suspect]
     Indication: HELICOBACTER PYLORI IDENTIFICATION TEST POSITIVE
     Dosage: 1 CARD (0.5 CARD)
     Route: 048
     Dates: start: 20060819, end: 20060819
  2. CLARITHROMYCIN [Suspect]
     Indication: GASTRIC ULCER
  3. LANSOPRAZOLE [Suspect]
     Indication: HELICOBACTER PYLORI IDENTIFICATION TEST POSITIVE
     Dosage: 1 CARD (0.5 CARD)
     Route: 048
     Dates: start: 20060819, end: 20060819
  4. LANSOPRAZOLE [Suspect]
     Indication: GASTRIC ULCER
  5. AMOXICILLIN [Suspect]
     Indication: HELICOBACTER PYLORI IDENTIFICATION TEST POSITIVE
     Dosage: 1 CARD (0.5 CARD)
     Route: 048
     Dates: start: 20060819, end: 20060819
  6. AMOXICILLIN [Suspect]
     Indication: GASTRIC ULCER

REACTIONS (2)
  - PYREXIA [None]
  - RASH GENERALISED [None]
